FAERS Safety Report 8813186 (Version 1)
Quarter: 2012Q4

REPORT INFORMATION
  Report Type: 
  Country: US (occurrence: US)
  Receive Date: 20120927
  Receipt Date: 20120927
  Transmission Date: 20130627
  Serious: No
  Sender: FDA-Public Use
  Company Number: US-AMGEN-USASP2012037941

PATIENT
  Sex: Female

DRUGS (7)
  1. PROLIA [Suspect]
     Indication: OSTEOPOROSIS POSTMENOPAUSAL
     Dosage: 60 mg, q6mo
     Route: 058
     Dates: start: 20111005
  2. VITAMIN D /00107901/ [Concomitant]
  3. LIPITOR [Concomitant]
     Dosage: 1 UNK, UNK
  4. RESTASIS [Concomitant]
  5. PILOCARPINE [Concomitant]
  6. CALCIUM VIT D [Concomitant]
     Dosage: UNK
  7. PANTOPRAZOLE [Concomitant]

REACTIONS (1)
  - Jaw disorder [Recovering/Resolving]
